FAERS Safety Report 14593343 (Version 2)
Quarter: 2018Q2

REPORT INFORMATION
  Report Type: Report from Study
  Country: AU (occurrence: AU)
  Receive Date: 20180302
  Receipt Date: 20180423
  Transmission Date: 20180711
  Serious: Yes (Hospitalization, Other)
  Sender: FDA-Public Use
  Company Number: AU-BRISTOL-MYERS SQUIBB COMPANY-BMS-2018-017894

PATIENT
  Age: 53 Year
  Sex: Male
  Weight: 92.3 kg

DRUGS (9)
  1. PARACETAMOL [Concomitant]
     Active Substance: ACETAMINOPHEN
     Indication: PAIN
     Dosage: 1 G, QID
     Route: 048
     Dates: start: 201711
  2. JURNISTA [Concomitant]
     Active Substance: HYDROMORPHONE HYDROCHLORIDE
     Indication: PAIN
     Dosage: 40 MG, QD
     Route: 048
     Dates: start: 20180209
  3. COVERAM [Concomitant]
     Active Substance: AMLODIPINE\PERINDOPRIL
     Indication: HYPERTENSION
     Dosage: 1 DF, QD
     Route: 048
     Dates: start: 2014
  4. NIVOLUMAB [Suspect]
     Active Substance: NIVOLUMAB
     Indication: PANCREATIC CARCINOMA METASTATIC
     Dosage: 240 MG, UNK
     Route: 065
     Dates: start: 20180220, end: 20180220
  5. COLOXYL WITH SENNA [Concomitant]
     Active Substance: DOCUSATE\SENNOSIDES
     Indication: CONSTIPATION PROPHYLAXIS
     Dosage: 2 TAB, BID
     Route: 048
     Dates: start: 201712
  6. PG545 [Suspect]
     Active Substance: PIXATIMOD SODIUM
     Indication: PANCREATIC CARCINOMA METASTATIC
     Dosage: 25 MG, UNK
     Route: 065
     Dates: start: 20180220, end: 20180220
  7. PREGABALIN. [Concomitant]
     Active Substance: PREGABALIN
     Indication: PAIN
     Dosage: 150 MG, QD
     Route: 048
     Dates: start: 20180212
  8. OXYCODONE [Concomitant]
     Active Substance: OXYCODONE
     Indication: PAIN
     Dosage: UNK, Q4H
     Route: 048
     Dates: start: 201712
  9. JURNISTA [Concomitant]
     Active Substance: HYDROMORPHONE HYDROCHLORIDE
     Indication: PRODUCT USED FOR UNKNOWN INDICATION
     Dosage: 32 MG, QD
     Route: 048
     Dates: start: 20180206, end: 20180208

REACTIONS (1)
  - Pneumonitis [Recovered/Resolved]

NARRATIVE: CASE EVENT DATE: 20180223
